FAERS Safety Report 15543341 (Version 1)
Quarter: 2018Q4

REPORT INFORMATION
  Report Type: Spontaneous
  Country: QA (occurrence: QA)
  Receive Date: 20181023
  Receipt Date: 20181023
  Transmission Date: 20190205
  Serious: Yes (Death, Other)
  Sender: FDA-Public Use
  Company Number: QA-PFIZER INC-2018429012

PATIENT
  Age: 54 Year
  Sex: Male

DRUGS (5)
  1. INSULIN [Concomitant]
     Active Substance: INSULIN NOS
     Indication: DIABETES MELLITUS
     Dosage: UNK (BASAL BOLUS INSULIN)
  2. CEFTAZIDIME. [Suspect]
     Active Substance: CEFTAZIDIME
     Indication: FUNGAL INFECTION
     Dosage: UNK
     Route: 042
  3. INSULIN [Concomitant]
     Active Substance: INSULIN NOS
     Indication: HYPERGLYCAEMIA
  4. LINEZOLID. [Suspect]
     Active Substance: LINEZOLID
     Indication: FUNGAL INFECTION
     Dosage: UNK
     Route: 042
  5. AMPHOTERICIN B, LIPOSOME [Suspect]
     Active Substance: AMPHOTERICIN B
     Indication: FUNGAL INFECTION
     Dosage: UNK
     Route: 042

REACTIONS (2)
  - Ischaemic stroke [Fatal]
  - Drug ineffective [Fatal]
